FAERS Safety Report 15773198 (Version 2)
Quarter: 2019Q1

REPORT INFORMATION
  Report Type: Report from Study
  Country: US (occurrence: US)
  Receive Date: 20181228
  Receipt Date: 20190207
  Transmission Date: 20190417
  Serious: Yes (Other)
  Sender: FDA-Public Use
  Company Number: US-SA-2018SA396767

PATIENT
  Sex: Male

DRUGS (1)
  1. TERIFLUNOMIDE. [Suspect]
     Active Substance: TERIFLUNOMIDE
     Indication: RELAPSING-REMITTING MULTIPLE SCLEROSIS
     Dosage: 14 MG, QD
     Route: 048
     Dates: start: 201811

REACTIONS (7)
  - Multiple sclerosis relapse [Recovered/Resolved]
  - Impaired driving ability [Recovered/Resolved]
  - Wheelchair user [Recovered/Resolved]
  - Hypoaesthesia [Recovered/Resolved]
  - Gait disturbance [Recovered/Resolved]
  - Unevaluable event [Unknown]
  - Diarrhoea [Unknown]

NARRATIVE: CASE EVENT DATE: 201811
